FAERS Safety Report 7035120-9 (Version None)
Quarter: 2010Q4

REPORT INFORMATION
  Report Type: 
  Country: None (occurrence: None)
  Receive Date: 20101008
  Receipt Date: 20100929
  Transmission Date: 20110411
  Serious: Yes (Other)
  Sender: FDA-Public Use
  Company Number: PHHY2010US64857

PATIENT
  Sex: Male
  Weight: 126.98 kg

DRUGS (1)
  1. SANDOSTATIN LAR [Suspect]
     Dosage: 10 MG, EVERY 4 WEEKS
     Route: 030
     Dates: start: 20100531

REACTIONS (1)
  - WEIGHT INCREASED [None]
